FAERS Safety Report 8799606 (Version 1)
Quarter: 2012Q4

REPORT INFORMATION
  Report Type: 
  Country: US (occurrence: US)
  Receive Date: 20120919
  Receipt Date: 20120919
  Transmission Date: 20130627
  Serious: Yes (Hospitalization)
  Sender: FDA-Public Use
  Company Number: US-RANBAXY-2012US-60025

PATIENT
  Age: 80 Year
  Sex: Male

DRUGS (2)
  1. CIPROFLOXACIN [Suspect]
     Indication: ENDOCARDITIS BACTERIAL
     Dosage: UNK
     Route: 048
  2. CIPROFLOXACIN [Suspect]
     Dosage: 750mg/day
     Route: 048

REACTIONS (1)
  - Drug resistance [Recovered/Resolved]
